FAERS Safety Report 22080368 (Version 1)
Quarter: 2023Q1

REPORT INFORMATION
  Report Type: Spontaneous
  Country: US (occurrence: None)
  Receive Date: 20230309
  Receipt Date: 20230309
  Transmission Date: 20230418
  Serious: Yes (Death)
  Sender: FDA-Public Use
  Company Number: None

PATIENT
  Age: 71 Year
  Sex: Female
  Weight: 89.81 kg

DRUGS (5)
  1. KEYTRUDA [Suspect]
     Active Substance: PEMBROLIZUMAB
     Indication: Skin cancer
     Dosage: OTHER FREQUENCY : Q21DAYS;?
     Route: 042
     Dates: end: 20230306
  2. DOXYCYCLINE [Concomitant]
  3. LISINOPRIL [Concomitant]
  4. METRONIDAZOLE [Concomitant]
  5. TAMOXIFEN [Concomitant]
     Active Substance: TAMOXIFEN

REACTIONS (1)
  - Death [None]

NARRATIVE: CASE EVENT DATE: 20230306
